FAERS Safety Report 24591116 (Version 2)
Quarter: 2024Q4

REPORT INFORMATION
  Report Type: Report from Study
  Country: US (occurrence: US)
  Receive Date: 20241107
  Receipt Date: 20241219
  Transmission Date: 20250115
  Serious: Yes (Hospitalization)
  Sender: ABBVIE
  Company Number: US-ABBVIE-5992135

PATIENT
  Age: 74 Year
  Sex: Female
  Weight: 64 kg

DRUGS (18)
  1. HUMIRA [Suspect]
     Active Substance: ADALIMUMAB
     Indication: Colitis ulcerative
     Dosage: FIRST LOADING DOSE
     Route: 058
     Dates: start: 20240307, end: 20240307
  2. HUMIRA [Suspect]
     Active Substance: ADALIMUMAB
     Dosage: SECOND LOADING DOSE
     Route: 058
     Dates: start: 20240321, end: 20240321
  3. RINVOQ [Suspect]
     Active Substance: UPADACITINIB
     Indication: Colitis ulcerative
     Dosage: FORM STRENGTH: 45 MG
     Route: 048
     Dates: start: 20240910, end: 20241029
  4. BENICAR [Concomitant]
     Active Substance: OLMESARTAN MEDOXOMIL
     Indication: Product used for unknown indication
     Route: 048
  5. SODIUM CHLORIDE [Concomitant]
     Active Substance: SODIUM CHLORIDE
     Indication: Product used for unknown indication
     Dosage: TAKE 1 TABLET (1 G TOTAL) BY MOUTH IN THE MORNING AND 1 TABLET (1 G TOTAL)?IN THE EVENING. TAKE W...
     Route: 048
  6. ECOTRIN [Concomitant]
     Active Substance: ASPIRIN
     Indication: Product used for unknown indication
     Dosage: TIME INTERVAL: AS NECESSARY: LOW STRENGTH
     Route: 048
  7. LIPITOR [Concomitant]
     Active Substance: ATORVASTATIN CALCIUM
     Indication: Type IIa hyperlipidaemia
     Route: 048
  8. PLAVIX [Concomitant]
     Active Substance: CLOPIDOGREL BISULFATE
     Indication: Product used for unknown indication
     Route: 048
  9. VITAMIN B12 [Concomitant]
     Active Substance: CYANOCOBALAMIN
     Indication: Product used for unknown indication
     Route: 048
  10. LOPRESSOR [Concomitant]
     Active Substance: METOPROLOL TARTRATE
     Indication: Essential hypertension
     Dosage: FORM STRENGTH: 25 MG
     Route: 048
  11. PRILOSEC [Concomitant]
     Active Substance: OMEPRAZOLE MAGNESIUM
     Indication: Product used for unknown indication
     Route: 048
  12. DELTASONE [Concomitant]
     Active Substance: PREDNISONE
     Indication: Product used for unknown indication
     Dosage: FORM STRENGTH: 5 MG  4 TABLETS (20 MG TOTAL) 1 (ONE) TIME EACH DAY.
     Route: 048
  13. DELTASONE [Concomitant]
     Active Substance: PREDNISONE
     Indication: Product used for unknown indication
     Route: 048
     Dates: start: 202404, end: 202405
  14. DELTASONE [Concomitant]
     Active Substance: PREDNISONE
     Indication: Product used for unknown indication
     Route: 048
     Dates: start: 20240510
  15. DELTASONE [Concomitant]
     Active Substance: PREDNISONE
     Indication: Product used for unknown indication
     Dosage: TAPERING TO 5 MG IN NEXT WEEK
     Route: 048
     Dates: start: 20240702
  16. SHINGRIX [Concomitant]
     Active Substance: RECOMBINANT VARICELLA ZOSTER VIRUS (VZV) GLYCOPROTEIN E
     Indication: Herpes zoster
  17. COVID-19 vaccine [Concomitant]
     Indication: COVID-19
  18. INFLUENZA VIRUS VACCINE [Concomitant]
     Active Substance: INFLUENZA VIRUS VACCINE
     Indication: Influenza

REACTIONS (28)
  - Acute psychosis [Recovering/Resolving]
  - Gait inability [Unknown]
  - Pneumonia [Recovering/Resolving]
  - Asthenia [Recovering/Resolving]
  - Musculoskeletal disorder [Unknown]
  - Aphasia [Recovered/Resolved]
  - Transient ischaemic attack [Unknown]
  - Hyponatraemia [Unknown]
  - Pyrexia [Unknown]
  - Diarrhoea [Unknown]
  - Hypokalaemia [Recovered/Resolved]
  - Pancytopenia [Unknown]
  - Dehydration [Unknown]
  - Troponin increased [Unknown]
  - Fatigue [Unknown]
  - Drug ineffective [Unknown]
  - Balance disorder [Unknown]
  - Diarrhoea [Unknown]
  - Myalgia [Unknown]
  - Vision blurred [Unknown]
  - Weight decreased [Unknown]
  - Constipation [Unknown]
  - Constipation [Unknown]
  - Aphasia [Unknown]
  - Cerebral artery stenosis [Unknown]
  - Drug ineffective [Unknown]
  - Hypovolaemia [Unknown]
  - Decreased appetite [Unknown]

NARRATIVE: CASE EVENT DATE: 20240101
